FAERS Safety Report 5672608-7 (Version None)
Quarter: 2008Q1

REPORT INFORMATION
  Report Type: 
  Country: None (occurrence: None)
  Receive Date: 20080319
  Receipt Date: 20070112
  Transmission Date: 20080703
  Serious: Yes (Other)
  Sender: FDA-Public Use
  Company Number: US-JNJFOC-20070103189

PATIENT
  Age: 18 Year
  Sex: Female

DRUGS (1)
  1. TRAMADOL HCL [Suspect]
     Indication: OVERDOSE
     Route: 048

REACTIONS (3)
  - DYSPNOEA [None]
  - OVERDOSE [None]
  - TREMOR [None]
